FAERS Safety Report 7066582-9 (Version None)
Quarter: 2010Q4

REPORT INFORMATION
  Report Type: 
  Country: None (occurrence: None)
  Receive Date: 20101027
  Receipt Date: 20100722
  Transmission Date: 20110411
  Serious: Yes (Life-Threatening, Other)
  Sender: FDA-Public Use
  Company Number: US-WYE-H15858410

PATIENT
  Age: 60 Year
  Sex: Female
  Weight: 83.99 kg

DRUGS (3)
  1. PREMPHASE 14/14 [Suspect]
     Indication: HORMONE THERAPY
     Dosage: 0.625MG/5MG; FREQUENCY UNKNOWN
     Route: 048
  2. CYCLOBENZAPRINE [Concomitant]
     Dosage: UNKNOWN
     Route: 065
  3. ADVIL [Concomitant]
     Dosage: UNKNOWN
     Route: 065

REACTIONS (3)
  - AMENORRHOEA [None]
  - ANAPHYLACTIC REACTION [None]
  - METRORRHAGIA [None]
